FAERS Safety Report 8220393-7 (Version None)
Quarter: 2012Q1

REPORT INFORMATION
  Report Type: 
  Country: None (occurrence: None)
  Receive Date: 20120320
  Receipt Date: 20120314
  Transmission Date: 20120608
  Serious: Yes (Other)
  Sender: FDA-Public Use
  Company Number: US-JNJFOC-20120106945

PATIENT
  Sex: Female
  Weight: 56.25 kg

DRUGS (7)
  1. LOSARTAN POTASSIUM [Suspect]
     Indication: HYPERTENSION
     Route: 048
     Dates: start: 20111201, end: 20120119
  2. SIMVASTATIN [Concomitant]
     Indication: BLOOD CHOLESTEROL
     Route: 048
  3. SOTALOL HCL [Concomitant]
     Indication: BLOOD PRESSURE
  4. BUNITROLOL [Concomitant]
     Indication: BLOOD PRESSURE
     Route: 048
  5. XARELTO [Suspect]
     Route: 048
     Dates: start: 20111201, end: 20111201
  6. PRADAXA [Concomitant]
  7. XARELTO [Suspect]
     Indication: ATRIAL FIBRILLATION
     Route: 048
     Dates: start: 20120101

REACTIONS (7)
  - SWOLLEN TONGUE [None]
  - DIZZINESS [None]
  - HEADACHE [None]
  - EPISTAXIS [None]
  - DYSPHAGIA [None]
  - EATING DISORDER [None]
  - ASTHENIA [None]
